FAERS Safety Report 9931559 (Version 1)
Quarter: 2014Q1

REPORT INFORMATION
  Report Type: Spontaneous
  Country: FR (occurrence: FR)
  Receive Date: 20140228
  Receipt Date: 20140228
  Transmission Date: 20141002
  Serious: Yes (Other)
  Sender: FDA-Public Use
  Company Number: FR-TEVA-464409ISR

PATIENT
  Age: 22 Year
  Sex: Female

DRUGS (1)
  1. LEELOO 0.1MG/0.02MG [Suspect]
     Indication: CONTRACEPTION
     Dosage: 1 DOSAGE FORMS DAILY;
     Route: 048
     Dates: start: 201306, end: 201401

REACTIONS (3)
  - Drug ineffective [Recovered/Resolved]
  - Unwanted pregnancy [Recovered/Resolved]
  - Abortion induced [Recovered/Resolved]
